FAERS Safety Report 6982273-4 (Version None)
Quarter: 2010Q3

REPORT INFORMATION
  Report Type: 
  Country: None (occurrence: None)
  Receive Date: 20100914
  Receipt Date: 20091218
  Transmission Date: 20110219
  Serious: No
  Sender: FDA-Public Use
  Company Number: US-PFIZER INC-2009313125

PATIENT
  Sex: Female
  Weight: 79 kg

DRUGS (3)
  1. LYRICA [Suspect]
     Indication: INTERVERTEBRAL DISCITIS
     Dosage: 75 MG, 2X/DAY
     Route: 048
     Dates: start: 20090901
  2. MOTRIN [Concomitant]
     Dosage: 300 MG, UNK
  3. TRAMADOL [Concomitant]
     Dosage: UNK

REACTIONS (1)
  - PAIN [None]
